FAERS Safety Report 4266346-5 (Version None)
Quarter: 2004Q1

REPORT INFORMATION
  Report Type: 
  Country: None (occurrence: None)
  Receive Date: 20040106
  Receipt Date: 20031224
  Transmission Date: 20041129
  Serious: Yes (Life-Threatening, Hospitalization)
  Sender: FDA-Public Use
  Company Number: 2003-UK-00800UK

PATIENT
  Age: 80 Year
  Sex: Female

DRUGS (4)
  1. MOBIC [Suspect]
     Indication: ARTHRITIS
     Dosage: 7.5 MG (ONCE DAILY)  PO
     Route: 048
  2. CLOPIDOGREL BISULFATE [Suspect]
     Indication: CEREBROVASCULAR ACCIDENT
     Dosage: 75 MG (ONCE DAILY)  PO
     Route: 048
  3. ASPIRIN [Concomitant]
  4. LANSOPRAZOLE [Concomitant]

REACTIONS (3)
  - DUODENAL ULCER PERFORATION [None]
  - HAEMATEMESIS [None]
  - MELAENA [None]
